FAERS Safety Report 8866054 (Version 2)
Quarter: 2012Q4

REPORT INFORMATION
  Report Type: 
  Country: KR (occurrence: KR)
  Receive Date: 20121025
  Receipt Date: 20121214
  Transmission Date: 20130627
  Serious: Yes (Death)
  Sender: FDA-Public Use
  Company Number: KR-CELGENEUS-286-21880-12102327

PATIENT
  Sex: Male

DRUGS (5)
  1. REVLIMID [Suspect]
     Indication: MULTIPLE MYELOMA
     Dosage: 5 Milligram
     Route: 048
     Dates: start: 20111201, end: 201209
  2. OXYCONTIN [Concomitant]
     Indication: PAIN
     Dosage: 160 Milligram
     Route: 048
     Dates: start: 20100623, end: 20121002
  3. ULCERMIN [Concomitant]
     Indication: PROPHYLAXIS AGAINST GASTROINTESTINAL ULCER
     Dosage: 3 Gram
     Route: 048
     Dates: start: 20050524, end: 20121002
  4. HARDCAL [Concomitant]
     Indication: SUPPLEMENTATION THERAPY
     Dosage: 1 Tablet
     Route: 048
     Dates: start: 20090806, end: 20121002
  5. GABAPENTIN [Concomitant]
     Indication: NEUROPATHY PERIPHERAL
     Dosage: 1200 Milligram
     Route: 048
     Dates: start: 20070802, end: 20121002

REACTIONS (1)
  - Plasma cell myeloma [Fatal]
